FAERS Safety Report 6407267-9 (Version None)
Quarter: 2009Q4

REPORT INFORMATION
  Report Type: 
  Country: None (occurrence: None)
  Receive Date: 20091020
  Receipt Date: 20091013
  Transmission Date: 20100525
  Serious: Yes (Hospitalization)
  Sender: FDA-Public Use
  Company Number: A0787470A

PATIENT
  Age: 62 Year
  Sex: Female
  Weight: 115.5 kg

DRUGS (9)
  1. AVANDIA [Suspect]
     Dosage: 4MG PER DAY
     Route: 048
     Dates: start: 20030201, end: 20050801
  2. ASPIRIN [Concomitant]
  3. LOVASTATIN [Concomitant]
  4. NORVASC [Concomitant]
  5. HYDROCHLOROTHIAZIDE [Concomitant]
  6. RANITIDINE [Concomitant]
  7. DIOVAN [Concomitant]
  8. METFORMIN [Concomitant]
  9. METOPROLOL [Concomitant]

REACTIONS (3)
  - ACUTE MYOCARDIAL INFARCTION [None]
  - CARDIAC FAILURE CONGESTIVE [None]
  - MYOCARDIAL ISCHAEMIA [None]
